FAERS Safety Report 7738801-4 (Version None)
Quarter: 2011Q3

REPORT INFORMATION
  Report Type: 
  Country: None (occurrence: None)
  Receive Date: 20110908
  Receipt Date: 20110826
  Transmission Date: 20111222
  Serious: Yes (Life-Threatening, Hospitalization)
  Sender: FDA-Public Use
  Company Number: IT-MYLANLABS-2011S1018313

PATIENT
  Age: 36 Year
  Sex: Male

DRUGS (5)
  1. ATENOLOL [Suspect]
     Indication: OVERDOSE
     Dosage: ESTIMATED AMOUNT OF 10G
     Route: 065
  2. SERTRALINE HYDROCHLORIDE [Suspect]
     Indication: OVERDOSE
     Dosage: UNKNOWN AMOUNT
     Route: 048
  3. NIFEDIPINE [Suspect]
     Indication: OVERDOSE
     Dosage: UNKNOWN AMOUNT
     Route: 048
  4. FLUOXETINE [Suspect]
     Indication: OVERDOSE
     Dosage: UNKNOWN AMOUNT
     Route: 048
  5. LACIDIPINE [Suspect]
     Indication: OVERDOSE
     Dosage: UNKNOWN AMOUNT
     Route: 048

REACTIONS (10)
  - DEPRESSED LEVEL OF CONSCIOUSNESS [None]
  - DYSPNOEA [None]
  - CARDIAC ARREST [None]
  - RENAL FAILURE ACUTE [None]
  - OVERDOSE [None]
  - METABOLIC ACIDOSIS [None]
  - HYPOXIA [None]
  - TOXICITY TO VARIOUS AGENTS [None]
  - HYPOTENSION [None]
  - SHOCK [None]
